FAERS Safety Report 18157874 (Version 1)
Quarter: 2020Q3

REPORT INFORMATION
  Report Type: Spontaneous
  Country: ES (occurrence: ES)
  Receive Date: 20200817
  Receipt Date: 20200817
  Transmission Date: 20201103
  Serious: Yes (Other)
  Sender: FDA-Public Use
  Company Number: NVSC2020ES222762

PATIENT
  Age: 61 Year
  Sex: Female

DRUGS (4)
  1. PIPERACILINA + TAZOBACTAM SANDOZ [Suspect]
     Active Substance: PIPERACILLIN SODIUM\TAZOBACTAM SODIUM
     Indication: POSTOPERATIVE WOUND INFECTION
     Dosage: 1 DF, Q8H
     Route: 042
     Dates: start: 20200622, end: 20200628
  2. AMIKACINA [Concomitant]
     Active Substance: AMIKACIN SULFATE
     Indication: POSTOPERATIVE WOUND INFECTION
     Dosage: 1200 MG, QD
     Route: 042
     Dates: start: 20200622, end: 20200626
  3. FUROSEMIDA [Concomitant]
     Active Substance: FUROSEMIDE
     Indication: PRODUCT USED FOR UNKNOWN INDICATION
     Dosage: 10 MG, Q12H
     Route: 042
     Dates: start: 20200622
  4. DAPTOMICINA [Concomitant]
     Active Substance: DAPTOMYCIN
     Indication: PRODUCT USED FOR UNKNOWN INDICATION
     Dosage: 700 MG, QD
     Route: 042
     Dates: start: 20200627

REACTIONS (1)
  - Toxic skin eruption [Recovered/Resolved]

NARRATIVE: CASE EVENT DATE: 20200624
